FAERS Safety Report 10168236 (Version 1)
Quarter: 2014Q2

REPORT INFORMATION
  Report Type: Spontaneous
  Country: US (occurrence: US)
  Receive Date: 20140512
  Receipt Date: 20140512
  Transmission Date: 20141212
  Serious: No
  Sender: FDA-Public Use
  Company Number: US-ASTRAZENECA-2014SE05301

PATIENT
  Age: 67 Year
  Sex: Female
  Weight: 81.6 kg

DRUGS (5)
  1. FASLODEX [Suspect]
     Indication: BREAST CANCER FEMALE
     Route: 030
     Dates: start: 201301
  2. FASLODEX [Suspect]
     Indication: BREAST CANCER FEMALE
     Route: 030
     Dates: start: 2013
  3. TAMOXIFEN THERAPY [Suspect]
     Route: 048
  4. HERCEPTIN [Concomitant]
     Indication: BREAST CANCER FEMALE
     Dosage: UNKNOWN
     Dates: start: 2010
  5. ZOMETA [Concomitant]
     Indication: BONE DISORDER
     Dosage: UNKNOWN

REACTIONS (8)
  - Musculoskeletal stiffness [Not Recovered/Not Resolved]
  - Weight increased [Not Recovered/Not Resolved]
  - Condition aggravated [Unknown]
  - Movement disorder [Unknown]
  - Injection site pain [Not Recovered/Not Resolved]
  - Injection site haemorrhage [Not Recovered/Not Resolved]
  - Bone pain [Unknown]
  - Intentional product misuse [Not Recovered/Not Resolved]
